FAERS Safety Report 25283113 (Version 2)
Quarter: 2025Q2

REPORT INFORMATION
  Report Type: Spontaneous
  Country: US (occurrence: US)
  Receive Date: 20250508
  Receipt Date: 20250626
  Transmission Date: 20250716
  Serious: Yes (Other)
  Sender: AMGEN
  Company Number: US-AMGEN-USASP2025087790

PATIENT
  Age: 77 Year
  Sex: Female

DRUGS (8)
  1. REPATHA [Suspect]
     Active Substance: EVOLOCUMAB
     Indication: Atrioventricular block
     Dosage: 140 MILLIGRAM PER MILLILITRE, Q2WK
     Route: 058
     Dates: start: 202410
  2. REPATHA [Suspect]
     Active Substance: EVOLOCUMAB
     Indication: Coronary artery disease
  3. REPATHA [Suspect]
     Active Substance: EVOLOCUMAB
     Indication: Hyperlipidaemia
  4. TRAZODONE [Concomitant]
     Active Substance: TRAZODONE HYDROCHLORIDE
     Route: 065
  5. B12 [Concomitant]
     Dosage: 1000 MILLIGRAM, QMO
     Route: 065
  6. ASPIRIN [Concomitant]
     Active Substance: ASPIRIN
     Route: 065
  7. FAMOTIDINE [Concomitant]
     Active Substance: FAMOTIDINE
     Route: 065
  8. METOPROLOL [Concomitant]
     Active Substance: METOPROLOL
     Dosage: 12.5 MILLIGRAM, QD
     Route: 065

REACTIONS (6)
  - Pulmonary fibrosis [Unknown]
  - Myocardial infarction [Unknown]
  - Heart valve incompetence [Unknown]
  - Cardiac pacemaker insertion [Unknown]
  - Device difficult to use [Unknown]
  - Poor quality device used [Unknown]

NARRATIVE: CASE EVENT DATE: 20250430
